FAERS Safety Report 5985259-1 (Version None)
Quarter: 2008Q4

REPORT INFORMATION
  Report Type: 
  Country: None (occurrence: None)
  Receive Date: 20081203
  Receipt Date: 20081110
  Transmission Date: 20090506
  Serious: No
  Sender: FDA-Public Use
  Company Number: ADE# 08-183

PATIENT
  Age: 87 Year
  Sex: Female

DRUGS (1)
  1. CARVEDOLOL [Suspect]

REACTIONS (2)
  - COELIAC DISEASE [None]
  - CONDITION AGGRAVATED [None]
